FAERS Safety Report 14305884 (Version 2)
Quarter: 2018Q1

REPORT INFORMATION
  Report Type: Spontaneous
  Country: US (occurrence: US)
  Receive Date: 20171219
  Receipt Date: 20180126
  Transmission Date: 20180509
  Serious: Yes (Death, Hospitalization, Other)
  Sender: FDA-Public Use
  Company Number: US-INTERCEPT-PMOCA2017001604

PATIENT

DRUGS (18)
  1. IBUPROFEN. [Concomitant]
     Active Substance: IBUPROFEN
     Indication: PAIN
     Dosage: 200 MG, UNK
  2. IRON [Concomitant]
     Active Substance: IRON
     Dosage: 25 MG, QD
     Route: 048
  3. LEVOTHYROXINE. [Concomitant]
     Active Substance: LEVOTHYROXINE
     Dosage: 100 MCG, QD
     Route: 048
  4. SERTRALINE [Concomitant]
     Active Substance: SERTRALINE HYDROCHLORIDE
     Indication: PRURITUS
     Dosage: 25 MG, QD
     Route: 048
  5. OCALIVA [Suspect]
     Active Substance: OBETICHOLIC ACID
     Indication: PRIMARY BILIARY CHOLANGITIS
     Dosage: 5 MG, QD
     Route: 048
     Dates: start: 20170713
  6. URSODIOL. [Concomitant]
     Active Substance: URSODIOL
     Dosage: 300 MG, BID
     Route: 048
  7. CALCIUM MAGNESIUM + VITAMIN D [Concomitant]
     Route: 048
  8. RIFAXIMIN. [Concomitant]
     Active Substance: RIFAXIMIN
     Dosage: 550 MG, BID
     Route: 048
  9. LACTULOSE. [Concomitant]
     Active Substance: LACTULOSE
     Dosage: 30 MG, BID
     Route: 048
     Dates: start: 201604
  10. SPIRONOLACTONE. [Concomitant]
     Active Substance: SPIRONOLACTONE
     Dosage: 25 MG, QD
     Route: 048
  11. OMEPRAZOLE. [Concomitant]
     Active Substance: OMEPRAZOLE
     Dosage: 20 MG, QD
     Route: 048
  12. CETIRIZINE [Concomitant]
     Active Substance: CETIRIZINE HYDROCHLORIDE
     Dosage: 10 MG, QD
     Route: 048
  13. NADOLOL. [Concomitant]
     Active Substance: NADOLOL
     Dosage: 20 MG, QD
     Route: 048
  14. SIMETHICONE (DIMETHICONE) [Concomitant]
     Active Substance: DIMETHICONE
     Indication: FLATULENCE
     Dosage: 80 MG,
     Route: 048
  15. OCALIVA [Suspect]
     Active Substance: OBETICHOLIC ACID
     Dosage: 5 MG, QW
     Route: 048
     Dates: start: 20171004
  16. BIOTIN [Concomitant]
     Active Substance: BIOTIN
     Dosage: 5 MG, BID
     Route: 048
  17. NALTREXONE [Concomitant]
     Active Substance: NALTREXONE
     Dosage: 25 MG, QD
     Route: 048
  18. LASIX [Concomitant]
     Active Substance: FUROSEMIDE
     Dosage: 20 MG, BID
     Route: 048

REACTIONS (22)
  - Jaundice [Unknown]
  - Ocular icterus [Unknown]
  - Cerebral haemorrhage [Fatal]
  - Ascites [Unknown]
  - Peritonitis bacterial [Unknown]
  - Conjunctivitis [Unknown]
  - Tremor [Unknown]
  - Ammonia increased [Unknown]
  - Hepatic encephalopathy [Recovered/Resolved]
  - Hepatic failure [Unknown]
  - Hypokalaemia [Unknown]
  - Hypotension [Unknown]
  - Pulmonary oedema [Unknown]
  - Pseudomonas infection [Unknown]
  - Confusional state [Unknown]
  - Fall [Unknown]
  - Somnolence [Unknown]
  - Pleural effusion [Unknown]
  - Pruritus [Unknown]
  - Hepatic encephalopathy [Unknown]
  - Renal failure [Unknown]
  - Blood bilirubin increased [Unknown]

NARRATIVE: CASE EVENT DATE: 20170817
